FAERS Safety Report 5386298-4 (Version None)
Quarter: 2007Q3

REPORT INFORMATION
  Report Type: 
  Country: None (occurrence: None)
  Receive Date: 20070713
  Receipt Date: 20070703
  Transmission Date: 20080115
  Serious: Yes (Congenital Anomaly, Other)
  Sender: FDA-Public Use
  Company Number: US-KINGPHARMUSA00001-K200700843

PATIENT

DRUGS (6)
  1. SEPTRA [Suspect]
     Route: 064
  2. FLUCONAZOLE [Suspect]
     Route: 064
  3. METHADONE HYDROCHLORIDE [Suspect]
     Route: 064
  4. PENTAMIDINE ISETHIONATE [Suspect]
     Route: 064
  5. EFAVIRENZ [Suspect]
     Route: 064
  6. NEVIRAPINE [Suspect]
     Route: 064

REACTIONS (9)
  - CONGENITAL ANOMALY [None]
  - DEAFNESS CONGENITAL [None]
  - DYSMORPHISM [None]
  - EAR MALFORMATION [None]
  - GRAND MAL CONVULSION [None]
  - LIMB MALFORMATION [None]
  - MULTIPLE CONGENITAL ABNORMALITIES [None]
  - SPINE MALFORMATION [None]
  - URINARY TRACT MALFORMATION [None]
